FAERS Safety Report 9478019 (Version 3)
Quarter: 2014Q2

REPORT INFORMATION
  Report Type: Report from Study
  Country: FR (occurrence: FR)
  Receive Date: 20130827
  Receipt Date: 20140409
  Transmission Date: 20141212
  Serious: Yes (Life-Threatening, Hospitalization, Other)
  Sender: FDA-Public Use
  Company Number: PHHY2013FR092372

PATIENT
  Age: 78 Year
  Sex: Female
  Weight: 55 kg

DRUGS (14)
  1. ACLASTA/ZOLEDRONATE [Suspect]
     Indication: OSTEOPOROSIS
     Dosage: 5 MG,FIRST INFUSION
     Route: 042
     Dates: start: 201202, end: 201202
  2. ACLASTA/ZOLEDRONATE [Suspect]
     Dosage: 5 MG,SECOND INFUSION
     Route: 042
     Dates: start: 20130214, end: 20130214
  3. ACLASTA/ZOLEDRONATE [Suspect]
     Dosage: 5 MG, THIRD INFUSION
     Route: 042
     Dates: start: 201401, end: 201401
  4. PREDNISONE [Suspect]
  5. METHOTREXATE [Concomitant]
     Indication: RHEUMATOID ARTHRITIS
     Dosage: 12.5 MG,WEEKLY
     Dates: start: 1997
  6. FOLIC ACID [Concomitant]
     Dates: start: 1997
  7. INIPOMP [Concomitant]
     Dates: start: 2002
  8. NORFLOXACIN [Concomitant]
     Dates: start: 2012
  9. VASTEN [Concomitant]
     Dates: start: 2004
  10. KARDEGIC [Concomitant]
     Indication: PERIPHERAL ARTERIAL OCCLUSIVE DISEASE
     Dosage: 75 MG,QD
     Dates: start: 1994
  11. CORTANCYL [Concomitant]
     Indication: RHEUMATOID ARTHRITIS
     Dosage: 5 MG,QD
     Dates: start: 1997
  12. CALCIUM [Concomitant]
  13. VITAMIN D [Concomitant]
  14. CRESTOR [Concomitant]
     Indication: HYPERCHOLESTEROLAEMIA
     Dosage: 5 MG, QD
     Dates: start: 1994

REACTIONS (8)
  - Hypotension [Not Recovered/Not Resolved]
  - Cardiac disorder [Unknown]
  - Acute coronary syndrome [Recovered/Resolved]
  - Fall [Unknown]
  - Radius fracture [Recovered/Resolved]
  - Aortic valve calcification [Unknown]
  - Aortic valve stenosis [Unknown]
  - Ventricular dyskinesia [Unknown]
